FAERS Safety Report 16119388 (Version 1)
Quarter: 2019Q1

REPORT INFORMATION
  Report Type: Spontaneous
  Country: US (occurrence: US)
  Receive Date: 20190326
  Receipt Date: 20190326
  Transmission Date: 20190418
  Serious: Yes (Hospitalization, Other)
  Sender: FDA-Public Use
  Company Number: US-NOVOPROD-653171

PATIENT
  Age: 62 Year
  Sex: Male

DRUGS (4)
  1. LEVEMIR [Suspect]
     Active Substance: INSULIN DETEMIR
     Indication: TYPE 2 DIABETES MELLITUS
     Dosage: 35-50 UNITS TWICE A DAY
     Route: 058
     Dates: start: 2013
  2. METFORMIN [Concomitant]
     Active Substance: METFORMIN HYDROCHLORIDE
     Indication: TYPE 2 DIABETES MELLITUS
     Dosage: 1000 MG, BID
     Route: 065
  3. LISINOPRIL. [Concomitant]
     Active Substance: LISINOPRIL
     Indication: HYPERTENSION
     Dosage: UNK
     Route: 065
  4. NOVOLOG [Suspect]
     Active Substance: INSULIN ASPART
     Indication: TYPE 2 DIABETES MELLITUS
     Dosage: 10 UNITS 2-3X A DAY
     Route: 058
     Dates: start: 2011

REACTIONS (10)
  - Blood glucose decreased [Unknown]
  - Vision blurred [Unknown]
  - Hypoglycaemic unconsciousness [Not Recovered/Not Resolved]
  - Blood glucose increased [Unknown]
  - Coma [Unknown]
  - Arthritis [Not Recovered/Not Resolved]
  - Glycosylated haemoglobin increased [Unknown]
  - Brain injury [Unknown]
  - Thrombosis [Not Recovered/Not Resolved]
  - Headache [Unknown]

NARRATIVE: CASE EVENT DATE: 201810
